FAERS Safety Report 8578844-4 (Version None)
Quarter: 2012Q3

REPORT INFORMATION
  Report Type: 
  Country: None (occurrence: None)
  Receive Date: 20120808
  Receipt Date: 20120803
  Transmission Date: 20120928
  Serious: Yes (Other)
  Sender: FDA-Public Use
  Company Number: PHFR2012GB004049

PATIENT
  Sex: Male

DRUGS (3)
  1. CLOZARIL [Suspect]
     Indication: SCHIZOPHRENIA
     Route: 048
     Dates: start: 20120620
  2. CLOZARIL [Suspect]
     Dates: end: 20120723
  3. CLOZARIL [Suspect]
     Dosage: 50 MG, UNK
     Dates: start: 20120701

REACTIONS (6)
  - FALL [None]
  - HYPOTONIA [None]
  - EOSINOPHIL COUNT INCREASED [None]
  - DRUG INTOLERANCE [None]
  - CIRCULATORY COLLAPSE [None]
  - DIFFERENTIAL WHITE BLOOD CELL COUNT ABNORMAL [None]
